FAERS Safety Report 5904653-8 (Version None)
Quarter: 2008Q4

REPORT INFORMATION
  Report Type: 
  Country: None (occurrence: None)
  Receive Date: 20081001
  Receipt Date: 20080923
  Transmission Date: 20090506
  Serious: Yes (Hospitalization)
  Sender: FDA-Public Use
  Company Number: US-NOVOPROD-279791

PATIENT
  Age: 62 Year
  Sex: Male

DRUGS (5)
  1. LEVEMIR [Suspect]
     Indication: INSULIN-REQUIRING TYPE 2 DIABETES MELLITUS
     Route: 058
     Dates: start: 20080808, end: 20080912
  2. PRAVACHOL [Concomitant]
     Route: 048
  3. LASIX [Concomitant]
     Route: 048
  4. K-DUR [Concomitant]
     Route: 048
  5. GLIMEPIRIDE [Concomitant]
     Indication: INSULIN-REQUIRING TYPE 2 DIABETES MELLITUS
     Route: 048

REACTIONS (1)
  - CARDIAC FAILURE CONGESTIVE [None]
